FAERS Safety Report 9143818 (Version 1)
Quarter: 2013Q1

REPORT INFORMATION
  Report Type: Spontaneous
  Country: CO (occurrence: CO)
  Receive Date: 20130306
  Receipt Date: 20130306
  Transmission Date: 20140127
  Serious: Yes (Other)
  Sender: FDA-Public Use
  Company Number: CO-AMGEN-COLSP2013015262

PATIENT
  Age: 78 Year
  Sex: Male

DRUGS (6)
  1. ENBREL [Suspect]
     Indication: RHEUMATOID ARTHRITIS
     Dosage: 50 MG, WEEKLY
     Route: 058
     Dates: start: 2008
  2. ARAVA [Concomitant]
     Indication: RHEUMATOID ARTHRITIS
     Dosage: 3 TABLETS OF 20 MG EACH 3 DAYS
     Dates: start: 2008
  3. TRAMADOL [Concomitant]
     Indication: PAIN
     Dosage: 18 DROPS, 1X/DAY
     Route: 048
  4. TRAMADOL [Concomitant]
     Dosage: 50 MG, 1X/DAY
     Route: 048
  5. FOLIC ACID [Concomitant]
     Dosage: 1 MG, UNK
     Route: 065
  6. TAMSULOSIN [Concomitant]
     Dosage: 0.4 MG, UNK
     Route: 065

REACTIONS (3)
  - Cerebral ischaemia [Unknown]
  - Osteoarthritis [Unknown]
  - Alopecia [Unknown]
